FAERS Safety Report 6993065-4 (Version None)
Quarter: 2010Q3

REPORT INFORMATION
  Report Type: 
  Country: None (occurrence: None)
  Receive Date: 20100917
  Receipt Date: 20100309
  Transmission Date: 20110219
  Serious: Yes (Hospitalization)
  Sender: FDA-Public Use
  Company Number: US-ASTRAZENECA-2008UW20555

PATIENT
  Age: 38 Year
  Sex: Female
  Weight: 90.7 kg

DRUGS (10)
  1. SEROQUEL [Suspect]
     Indication: BIPOLAR DISORDER
     Route: 048
     Dates: start: 20030501, end: 20091001
  2. ABILIFY [Concomitant]
  3. GEODON [Concomitant]
     Dates: start: 20091201
  4. HALDOL [Concomitant]
  5. RISPERDAL [Concomitant]
  6. THORAZINE [Concomitant]
  7. KLONOPIN [Concomitant]
     Indication: DEPRESSION
     Dates: start: 20030101
  8. TRAZODONE HCL [Concomitant]
     Indication: ANXIETY DISORDER
     Dates: start: 20030101
  9. LOPID [Concomitant]
     Dates: start: 20030101
  10. ZOCOR [Concomitant]
     Dates: start: 20030101

REACTIONS (6)
  - BLOOD CHOLESTEROL INCREASED [None]
  - BLOOD TRIGLYCERIDES INCREASED [None]
  - DELIRIUM [None]
  - HYPERLIPIDAEMIA [None]
  - OBESITY [None]
  - TYPE 2 DIABETES MELLITUS [None]
